FAERS Safety Report 16658775 (Version 1)
Quarter: 2019Q3

REPORT INFORMATION
  Report Type: Spontaneous
  Country: US (occurrence: US)
  Receive Date: 20190619
  Receipt Date: 20190619
  Transmission Date: 20191004
  Serious: No
  Sender: FDA-Public Use
  Company Number: None

PATIENT
  Age: 35 Year
  Sex: Female

DRUGS (1)
  1. STELARA [Suspect]
     Active Substance: USTEKINUMAB
     Indication: CROHN^S DISEASE
     Dosage: ?          OTHER DOSE:90MG;?
     Route: 058
     Dates: start: 201904

REACTIONS (3)
  - Product use issue [None]
  - Drug level decreased [None]
  - Condition aggravated [None]

NARRATIVE: CASE EVENT DATE: 20190619
